FAERS Safety Report 17623088 (Version 2)
Quarter: 2020Q2

REPORT INFORMATION
  Report Type: Report from Study
  Country: US (occurrence: US)
  Receive Date: 20200403
  Receipt Date: 20200430
  Transmission Date: 20200713
  Serious: Yes (Other)
  Sender: FDA-Public Use
  Company Number: NVSC2020US089758

PATIENT
  Age: 41 Year
  Sex: Female

DRUGS (1)
  1. COSENTYX [Suspect]
     Active Substance: SECUKINUMAB
     Indication: PSORIATIC ARTHROPATHY
     Dosage: 300 MG
     Route: 058
     Dates: start: 20200328

REACTIONS (8)
  - Product storage error [Unknown]
  - Seizure [Unknown]
  - Injection site pain [Unknown]
  - Burning sensation [Unknown]
  - Paraesthesia [Unknown]
  - Musculoskeletal stiffness [Unknown]
  - Respiratory rate increased [Unknown]
  - Stress [Unknown]

NARRATIVE: CASE EVENT DATE: 20200328
